FAERS Safety Report 18242314 (Version 2)
Quarter: 2021Q1

REPORT INFORMATION
  Report Type: Spontaneous
  Country: US (occurrence: US)
  Receive Date: 20200908
  Receipt Date: 20210122
  Transmission Date: 20210419
  Serious: Yes (Other)
  Sender: FDA-Public Use
  Company Number: US-GILEAD-2020-0493554

PATIENT
  Age: 48 Year
  Sex: Male

DRUGS (4)
  1. DARUNAVIR [Concomitant]
     Active Substance: DARUNAVIR
     Indication: CHRONIC KIDNEY DISEASE
     Dosage: UNK
     Dates: start: 201305
  2. VIREAD [Suspect]
     Active Substance: TENOFOVIR DISOPROXIL FUMARATE
     Indication: HIV INFECTION
     Dosage: UNK
     Route: 048
     Dates: start: 20100204, end: 20130604
  3. RALTEGRAVIR. [Concomitant]
     Active Substance: RALTEGRAVIR
     Indication: CHRONIC KIDNEY DISEASE
     Dosage: UNK
     Dates: start: 201305
  4. ETRAVIRINE [Concomitant]
     Active Substance: ETRAVIRINE
     Indication: CHRONIC KIDNEY DISEASE
     Dosage: UNK
     Dates: start: 201305

REACTIONS (5)
  - Anxiety [Unknown]
  - Emotional distress [Unknown]
  - Anhedonia [Unknown]
  - Pain [Unknown]
  - Chronic kidney disease [Not Recovered/Not Resolved]

NARRATIVE: CASE EVENT DATE: 20130507
